FAERS Safety Report 7001721-7 (Version None)
Quarter: 2010Q3

REPORT INFORMATION
  Report Type: 
  Country: None (occurrence: None)
  Receive Date: 20100920
  Receipt Date: 20100914
  Transmission Date: 20110219
  Serious: Yes (Death, Hospitalization)
  Sender: FDA-Public Use
  Company Number: CH-CELGENEUS-151-50794-10080216

PATIENT
  Age: 65 Year
  Sex: Male

DRUGS (6)
  1. VIDAZA [Suspect]
     Route: 058
     Dates: start: 20091012
  2. VIDAZA [Suspect]
     Route: 058
     Dates: start: 20091207, end: 20100104
  3. VIDAZA [Suspect]
     Route: 058
     Dates: start: 20100105, end: 20100613
  4. VIDAZA [Suspect]
     Route: 058
     Dates: start: 20100614, end: 20100711
  5. VIDAZA [Suspect]
     Route: 058
     Dates: start: 20100712
  6. SCHERIPROCT [Concomitant]
     Dosage: 3 APPLICATIONS
     Route: 065

REACTIONS (2)
  - ACUTE MYELOID LEUKAEMIA [None]
  - NEUTROPENIC INFECTION [None]
